FAERS Safety Report 15507471 (Version 1)
Quarter: 2018Q4

REPORT INFORMATION
  Report Type: Spontaneous
  Country: FR (occurrence: FR)
  Receive Date: 20181016
  Receipt Date: 20181016
  Transmission Date: 20190205
  Serious: Yes (Hospitalization)
  Sender: FDA-Public Use
  Company Number: PHHY2018FR119927

PATIENT
  Age: 42 Year
  Sex: Male
  Weight: 59 kg

DRUGS (2)
  1. AMOXICILLIN. [Suspect]
     Active Substance: AMOXICILLIN
     Indication: TONSILLITIS
     Dosage: 3 G, QD
     Route: 048
     Dates: start: 20180817, end: 20180819
  2. CIFLOX [Suspect]
     Active Substance: CIPROFLOXACIN
     Indication: TONSILLITIS
     Route: 048

REACTIONS (2)
  - Agranulocytosis [Recovered/Resolved]
  - Rash [Recovered/Resolved]

NARRATIVE: CASE EVENT DATE: 20180819
